FAERS Safety Report 8337665-8 (Version None)
Quarter: 2012Q2

REPORT INFORMATION
  Report Type: 
  Country: None (occurrence: None)
  Receive Date: 20120504
  Receipt Date: 20120504
  Transmission Date: 20120825
  Serious: Yes (Other)
  Sender: FDA-Public Use
  Company Number: None

PATIENT
  Age: 38 Year
  Sex: Female
  Weight: 70.306 kg

DRUGS (1)
  1. GILENYA [Suspect]
     Indication: MULTIPLE SCLEROSIS
     Dosage: |DOSAGETEXT: .5 MG||STRENGTH: .5 MG||FREQ: ONCE A DAY||ROUTE: ORAL|
     Route: 048
     Dates: start: 20111125, end: 20120401

REACTIONS (1)
  - CD4 LYMPHOCYTES DECREASED [None]
